FAERS Safety Report 11848097 (Version 2)
Quarter: 2016Q1

REPORT INFORMATION
  Report Type: Spontaneous
  Country: DE (occurrence: DE)
  Receive Date: 20151217
  Receipt Date: 20160119
  Transmission Date: 20160526
  Serious: Yes (Other)
  Sender: FDA-Public Use
  Company Number: DE-BRISTOL-MYERS SQUIBB COMPANY-BMS-2015-084526

PATIENT

DRUGS (1)
  1. LITALIR [Suspect]
     Active Substance: HYDROXYUREA
     Indication: PRODUCT USED FOR UNKNOWN INDICATION
     Dosage: UNAV
     Route: 065

REACTIONS (2)
  - Inguinal hernia [Unknown]
  - Inguinal hernia repair [Unknown]
